FAERS Safety Report 8876702 (Version 1)
Quarter: 2012Q4

REPORT INFORMATION
  Report Type: 
  Country: GB (occurrence: GB)
  Receive Date: 20121023
  Receipt Date: 20121023
  Transmission Date: 20130627
  Serious: Yes (Other)
  Sender: FDA-Public Use
  Company Number: GB-GILEAD-2012-0063333

PATIENT
  Age: 78 Year
  Sex: Male

DRUGS (2)
  1. TRUVADA [Suspect]
     Indication: HIV INFECTION
     Dosage: UNK
     Route: 048
  2. DARUNAVIR [Suspect]
     Indication: HIV INFECTION
     Route: 048

REACTIONS (2)
  - Arthritis [Recovered/Resolved]
  - Arthralgia [Recovered/Resolved]
